FAERS Safety Report 8327121-5 (Version None)
Quarter: 2012Q2

REPORT INFORMATION
  Report Type: 
  Country: None (occurrence: None)
  Receive Date: 20120501
  Receipt Date: 20120329
  Transmission Date: 20120825
  Serious: No
  Sender: FDA-Public Use
  Company Number: US-SANOFI-AVENTIS-2012SA022292

PATIENT
  Sex: Female

DRUGS (7)
  1. LANTUS [Concomitant]
  2. SOLOSTAR [Concomitant]
  3. COUMADIN [Suspect]
     Route: 065
  4. SOLOSTAR [Suspect]
     Dates: end: 20120329
  5. APIDRA [Suspect]
     Indication: TYPE 2 DIABETES MELLITUS
     Dosage: DOSE:6 UNIT(S)
     Route: 058
     Dates: end: 20120329
  6. APIDRA [Suspect]
     Dosage: DOSE:6 UNIT(S)
     Route: 058
     Dates: end: 20120329
  7. SOLOSTAR [Suspect]
     Indication: TYPE 2 DIABETES MELLITUS
     Dates: end: 20120329

REACTIONS (5)
  - INJECTION SITE HAEMORRHAGE [None]
  - HUNGER [None]
  - PAIN [None]
  - WEIGHT INCREASED [None]
  - CONTUSION [None]
